FAERS Safety Report 6162133-1 (Version None)
Quarter: 2009Q2

REPORT INFORMATION
  Report Type: 
  Country: None (occurrence: None)
  Receive Date: 20090421
  Receipt Date: 20081125
  Transmission Date: 20091009
  Serious: Yes (Other)
  Sender: FDA-Public Use
  Company Number: US-PFIZER INC-2007107664

PATIENT
  Age: 34 Year
  Sex: Female
  Weight: 58.957 kg

DRUGS (3)
  1. CHANTIX [Suspect]
     Indication: SMOKING CESSATION THERAPY
     Dosage: 1 MG, 2X/DAY
     Route: 048
     Dates: start: 20070801, end: 20071001
  2. XANAX [Concomitant]
  3. PREMARIN [Concomitant]

REACTIONS (6)
  - AGGRESSION [None]
  - ANXIETY [None]
  - EMOTIONAL DISORDER [None]
  - LOSS OF EMPLOYMENT [None]
  - PARTNER STRESS [None]
  - SUICIDAL IDEATION [None]
